FAERS Safety Report 4734121-0 (Version None)
Quarter: 2005Q3

REPORT INFORMATION
  Report Type: 
  Country: None (occurrence: None)
  Receive Date: 20050729
  Receipt Date: 20050726
  Transmission Date: 20060218
  Serious: Yes (Death, Life-Threatening, Other)
  Sender: FDA-Public Use
  Company Number: 005287

PATIENT
  Age: 31 Year
  Sex: Female

DRUGS (1)
  1. SEASONALE [Suspect]
     Dosage: ORAL
     Route: 048
     Dates: start: 20040101

REACTIONS (5)
  - BRAIN DAMAGE [None]
  - CARDIAC ARREST [None]
  - DEEP VEIN THROMBOSIS [None]
  - INTRACARDIAC THROMBUS [None]
  - PULMONARY EMBOLISM [None]
